FAERS Safety Report 4641245-5 (Version None)
Quarter: 2005Q2

REPORT INFORMATION
  Report Type: 
  Country: None (occurrence: None)
  Receive Date: 20050421
  Receipt Date: 20050408
  Transmission Date: 20051028
  Serious: Yes (Other)
  Sender: FDA-Public Use
  Company Number: GB-JNJFOC-20050400802

PATIENT
  Sex: Male

DRUGS (8)
  1. DURAGESIC-100 [Suspect]
     Indication: PAIN
     Route: 062
  2. TEGRETOL [Concomitant]
     Indication: EPILEPSY
     Route: 065
  3. BACLOFEN [Concomitant]
     Indication: MUSCLE SPASMS
     Route: 065
  4. METOCLOPRAMIDE [Concomitant]
     Indication: NAUSEA
     Route: 065
  5. METOCLOPRAMIDE [Concomitant]
     Indication: DYSPEPSIA
     Route: 065
  6. CALFOVIT D3 [Concomitant]
     Route: 065
  7. CALFOVIT D3 [Concomitant]
     Dosage: 1 SACHET DAILY.
     Route: 065
  8. SENNA [Concomitant]
     Indication: CONSTIPATION
     Route: 065

REACTIONS (5)
  - FEEDING DISORDER [None]
  - INCONTINENCE [None]
  - RESPIRATORY DEPRESSION [None]
  - SOMNOLENCE [None]
  - TRANSIENT ISCHAEMIC ATTACK [None]
